FAERS Safety Report 6525872-6 (Version None)
Quarter: 2010Q1

REPORT INFORMATION
  Report Type: 
  Country: None (occurrence: None)
  Receive Date: 20100104
  Receipt Date: 20091228
  Transmission Date: 20100710
  Serious: Yes (Hospitalization)
  Sender: FDA-Public Use
  Company Number: B0622378A

PATIENT
  Age: 75 Year
  Sex: Male

DRUGS (1)
  1. SERETIDE [Suspect]
     Indication: CHRONIC OBSTRUCTIVE PULMONARY DISEASE
     Route: 055

REACTIONS (4)
  - HAEMOPTYSIS [None]
  - ILL-DEFINED DISORDER [None]
  - PNEUMONIA [None]
  - RESPIRATORY TRACT IRRITATION [None]
